FAERS Safety Report 16010371 (Version 2)
Quarter: 2019Q1

REPORT INFORMATION
  Report Type: Other
  Country: FR (occurrence: FR)
  Receive Date: 20190225
  Receipt Date: 20190302
  Transmission Date: 20190418
  Serious: Yes (Life-Threatening, Hospitalization, Other)
  Sender: FDA-Public Use
  Company Number: FR-APOTEX-2019AP008271

PATIENT
  Age: 68 Year
  Sex: Male
  Weight: 112 kg

DRUGS (20)
  1. OLANZAPINE. [Suspect]
     Active Substance: OLANZAPINE
     Indication: PRODUCT USED FOR UNKNOWN INDICATION
     Dosage: 5 MG, UNK
     Route: 048
     Dates: start: 2012
  2. ATTENTIN                           /00016602/ [Interacting]
     Active Substance: DEXTROAMPHETAMINE SULFATE
     Dosage: 5 MG, QD
     Route: 048
     Dates: start: 20171221
  3. METFORMINE                         /00082701/ [Suspect]
     Active Substance: METFORMIN HYDROCHLORIDE
     Indication: DIABETES MELLITUS
     Dosage: 3 G, UNK
     Route: 048
     Dates: end: 20180420
  4. KALEORID LP [Suspect]
     Active Substance: POTASSIUM CHLORIDE
     Indication: PRODUCT USED FOR UNKNOWN INDICATION
     Dosage: 1 DF, QD
     Route: 065
  5. LIRAGLUTIDE [Concomitant]
     Active Substance: LIRAGLUTIDE
     Indication: DIABETES MELLITUS
     Dosage: 10 IU, UNK
     Route: 065
  6. VENLAFAXINE [Interacting]
     Active Substance: VENLAFAXINE HYDROCHLORIDE
     Indication: NARCOLEPSY
     Dosage: 300 MG, UNK
     Route: 048
     Dates: start: 2012, end: 20180419
  7. LANTUS [Suspect]
     Active Substance: INSULIN GLARGINE
     Indication: DIABETES MELLITUS
     Dosage: 52 IU, UNK
     Route: 058
     Dates: end: 20180420
  8. CHLORURE DE POTASSIUM [Suspect]
     Active Substance: POTASSIUM CHLORIDE
     Indication: PRODUCT USED FOR UNKNOWN INDICATION
     Dosage: 1 G, UNK
     Route: 042
     Dates: end: 20180420
  9. EFFEXOR [Suspect]
     Active Substance: VENLAFAXINE HYDROCHLORIDE
     Indication: NARCOLEPSY
     Dosage: 75 MG, QD
     Route: 065
     Dates: start: 2012
  10. GLUCOPHAGE [Concomitant]
     Active Substance: METFORMIN HYDROCHLORIDE
     Indication: DIABETES MELLITUS
     Dosage: 1 DF, QD
     Route: 065
  11. VICTOZA [Suspect]
     Active Substance: LIRAGLUTIDE
     Indication: DIABETES MELLITUS
     Dosage: 0.6 MG, UNK
     Route: 058
     Dates: end: 20180420
  12. HYDROCHLOROTHIAZIDE. [Suspect]
     Active Substance: HYDROCHLOROTHIAZIDE
     Indication: HYPERTENSION
     Dosage: 25 MG, UNK
     Route: 048
     Dates: end: 20180420
  13. ROSUVASTATINE                      /01588601/ [Suspect]
     Active Substance: ROSUVASTATIN
     Indication: HYPERCHOLESTEROLAEMIA
     Dosage: 5 MG, UNK
     Route: 048
     Dates: end: 20180420
  14. ATTENTIN                           /00016602/ [Interacting]
     Active Substance: DEXTROAMPHETAMINE SULFATE
     Indication: NARCOLEPSY
     Dosage: 20 MG, QD
     Route: 048
     Dates: start: 20171114, end: 20180419
  15. REPAGLINIDE. [Suspect]
     Active Substance: REPAGLINIDE
     Indication: DIABETES MELLITUS
     Dosage: 2 MG, UNK
     Route: 048
     Dates: end: 20180420
  16. ZYPREXA [Suspect]
     Active Substance: OLANZAPINE
     Indication: SLEEP DISORDER
     Dosage: 5 MG, QD
     Route: 065
  17. ATTENTIN                           /00016602/ [Interacting]
     Active Substance: DEXTROAMPHETAMINE SULFATE
     Dosage: 5 MG, QD
     Route: 048
     Dates: start: 20171121, end: 20171220
  18. IRBESARTAN. [Suspect]
     Active Substance: IRBESARTAN
     Indication: HYPERTENSION
     Dosage: 300 MG, UNK
     Route: 048
     Dates: end: 20180420
  19. NOVONORM [Concomitant]
     Active Substance: REPAGLINIDE
     Indication: DIABETES MELLITUS
     Dosage: 2 DF, QD
     Route: 065
  20. INSULIN [Concomitant]
     Active Substance: INSULIN NOS
     Indication: PRODUCT USED FOR UNKNOWN INDICATION
     Dosage: UNK
     Route: 065

REACTIONS (8)
  - Cardio-respiratory arrest [Unknown]
  - Atrial fibrillation [Unknown]
  - Extrasystoles [Unknown]
  - Supraventricular extrasystoles [Unknown]
  - Chest pain [Recovered/Resolved]
  - Ventricular fibrillation [Unknown]
  - Dyspnoea [Recovered/Resolved]
  - Discomfort [Recovered/Resolved]

NARRATIVE: CASE EVENT DATE: 20180103
